FAERS Safety Report 25595440 (Version 2)
Quarter: 2025Q3

REPORT INFORMATION
  Report Type: Spontaneous
  Country: US (occurrence: US)
  Receive Date: 20250723
  Receipt Date: 20250814
  Transmission Date: 20251021
  Serious: Yes (Hospitalization, Other)
  Sender: TEVA
  Company Number: US-TEVA-VS-3354783

PATIENT
  Age: 61 Year
  Sex: Female

DRUGS (1)
  1. VALACYCLOVIR HYDROCHLORIDE [Suspect]
     Active Substance: VALACYCLOVIR HYDROCHLORIDE
     Indication: Herpes zoster
     Route: 065

REACTIONS (5)
  - Neurotoxicity [Recovering/Resolving]
  - Cerebrovascular accident [Recovering/Resolving]
  - Facial paralysis [Recovering/Resolving]
  - Muscular weakness [Recovering/Resolving]
  - Aphasia [Recovering/Resolving]
